FAERS Safety Report 13012694 (Version 1)
Quarter: 2016Q4

REPORT INFORMATION
  Report Type: Spontaneous
  Country: US (occurrence: US)
  Receive Date: 20161208
  Receipt Date: 20161208
  Transmission Date: 20170207
  Serious: Yes (Life-Threatening, Other)
  Sender: FDA-Public Use
  Company Number: None

PATIENT
  Age: 66 Year
  Sex: Female
  Weight: 54.9 kg

DRUGS (2)
  1. BOTOX [Suspect]
     Active Substance: ONABOTULINUMTOXINA
     Indication: SKIN COSMETIC PROCEDURE
     Dosage: OTHER ROUTE:INJECTIONS AROUND EYES?
     Dates: start: 20160826, end: 20160826
  2. MMS [Concomitant]

REACTIONS (5)
  - Migraine [None]
  - Gingival discomfort [None]
  - Tooth disorder [None]
  - Diplopia [None]
  - Swelling face [None]

NARRATIVE: CASE EVENT DATE: 20160826
